FAERS Safety Report 9375078 (Version 1)
Quarter: 2013Q2

REPORT INFORMATION
  Report Type: Report from Study
  Country: CA (occurrence: CA)
  Receive Date: 20130628
  Receipt Date: 20130628
  Transmission Date: 20140414
  Serious: Yes (Other)
  Sender: FDA-Public Use
  Company Number: CA-JNJFOC-20130611745

PATIENT
  Age: 24 Year
  Sex: Male
  Weight: 105 kg

DRUGS (7)
  1. REMICADE [Suspect]
     Indication: COLITIS ULCERATIVE
     Route: 042
     Dates: start: 20061017
  2. MEZAVANT [Concomitant]
     Route: 048
  3. LITHIUM [Concomitant]
     Route: 048
  4. SEROQUEL [Concomitant]
     Route: 048
  5. IMOVANE [Concomitant]
     Route: 048
  6. ALTACE [Concomitant]
     Route: 048
  7. DULERA [Concomitant]
     Route: 065

REACTIONS (1)
  - Pleurisy [Unknown]
